FAERS Safety Report 5733777-3 (Version None)
Quarter: 2008Q2

REPORT INFORMATION
  Report Type: 
  Country: None (occurrence: None)
  Receive Date: 20080509
  Receipt Date: 20080429
  Transmission Date: 20081010
  Serious: Yes (Hospitalization, Other)
  Sender: FDA-Public Use
  Company Number: AU-PFIZER INC-2008020701

PATIENT
  Sex: Male

DRUGS (4)
  1. CHANTIX [Suspect]
     Indication: SMOKING CESSATION THERAPY
     Route: 048
     Dates: start: 20080215, end: 20080218
  2. SERETIDE [Concomitant]
  3. VENTOLIN [Concomitant]
  4. ANTIHISTAMINES [Concomitant]

REACTIONS (7)
  - BLINDNESS [None]
  - EYE PAIN [None]
  - MIGRAINE [None]
  - NAUSEA [None]
  - NEUTROPHILIA [None]
  - VISION BLURRED [None]
  - VOMITING [None]
